FAERS Safety Report 4823684-2 (Version None)
Quarter: 2005Q4

REPORT INFORMATION
  Report Type: 
  Country: None (occurrence: None)
  Receive Date: 20051107
  Receipt Date: 20051027
  Transmission Date: 20060501
  Serious: Yes (Other)
  Sender: FDA-Public Use
  Company Number: 2005149113

PATIENT
  Age: 61 Year
  Sex: Male
  Weight: 117.9352 kg

DRUGS (5)
  1. LIPITOR [Suspect]
     Indication: AORTIC ANEURYSM
     Dosage: 20 MG (1 IN 1 D), ORAL
     Route: 048
     Dates: start: 19950501
  2. ISOSORBIDE (ISOSORBIDE) [Concomitant]
  3. FISH OIL (FISH OIL) [Concomitant]
  4. TOPROL (METOPROLOL) [Concomitant]
  5. NIASPAN [Concomitant]

REACTIONS (5)
  - ANEURYSM [None]
  - CATARACT [None]
  - DRUG EFFECT DECREASED [None]
  - GLAUCOMA [None]
  - LUNG DISORDER [None]
